FAERS Safety Report 12964918 (Version 1)
Quarter: 2016Q4

REPORT INFORMATION
  Report Type: Spontaneous
  Country: JP (occurrence: JP)
  Receive Date: 20161122
  Receipt Date: 20161122
  Transmission Date: 20170207
  Serious: Yes (Other)
  Sender: FDA-Public Use
  Company Number: JP-PFIZER INC-2016365255

PATIENT
  Age: 63 Year
  Sex: Female
  Weight: 33.7 kg

DRUGS (1)
  1. VFEND [Suspect]
     Active Substance: VORICONAZOLE
     Dosage: 100 MG, 2X/DAY
     Route: 041
     Dates: start: 20160630, end: 20160727

REACTIONS (3)
  - Eye pain [Recovering/Resolving]
  - Asthenopia [Recovering/Resolving]
  - Vision blurred [Recovering/Resolving]

NARRATIVE: CASE EVENT DATE: 20160721
